FAERS Safety Report 25541507 (Version 1)
Quarter: 2025Q3

REPORT INFORMATION
  Report Type: Spontaneous
  Country: US (occurrence: US)
  Receive Date: 20250711
  Receipt Date: 20250711
  Transmission Date: 20251021
  Serious: Yes (Hospitalization, Other)
  Sender: ALEMBIC
  Company Number: US-MLMSERVICE-20250619-PI545402-00330-1

PATIENT

DRUGS (9)
  1. DULOXETINE HYDROCHLORIDE [Interacting]
     Active Substance: DULOXETINE HYDROCHLORIDE
     Indication: Depression
     Route: 065
  2. DULOXETINE HYDROCHLORIDE [Interacting]
     Active Substance: DULOXETINE HYDROCHLORIDE
     Route: 065
  3. VENLAFAXINE [Interacting]
     Active Substance: VENLAFAXINE HYDROCHLORIDE
     Indication: Depression
     Route: 065
  4. KAVA [Interacting]
     Active Substance: PIPER METHYSTICUM ROOT
     Indication: Anxiety
     Route: 065
  5. KAVA [Interacting]
     Active Substance: PIPER METHYSTICUM ROOT
     Indication: Anxiety
     Route: 065
  6. ARIPIPRAZOLE [Concomitant]
     Active Substance: ARIPIPRAZOLE
     Indication: Product used for unknown indication
     Route: 065
  7. ZOLPIDEM [Concomitant]
     Active Substance: ZOLPIDEM TARTRATE
     Indication: Product used for unknown indication
     Route: 065
  8. ETHINYL ESTRADIOL /NORETHINDRONE [Concomitant]
     Indication: Product used for unknown indication
     Route: 065
  9. GUAIFENESIN, DEXTROMETHORPHAN/ PHENYLEPHRINE [Concomitant]
     Indication: Cough
     Route: 065

REACTIONS (6)
  - Drug interaction [Recovered/Resolved]
  - Muscle twitching [None]
  - Tachycardia [None]
  - Hyperreflexia [None]
  - Myoclonus [None]
  - Serotonin syndrome [Recovered/Resolved]
